FAERS Safety Report 5215712-X (Version None)
Quarter: 2007Q1

REPORT INFORMATION
  Report Type: 
  Country: None (occurrence: None)
  Receive Date: 20070117
  Receipt Date: 20070116
  Transmission Date: 20070707
  Serious: Yes (Hospitalization, Other)
  Sender: FDA-Public Use
  Company Number: HQWYE198115DEC06

PATIENT
  Age: 4 Year
  Sex: Male

DRUGS (2)
  1. CEFIXIME [Suspect]
     Indication: EAR INFECTION
     Dosage: ORAL
     Route: 048
     Dates: start: 20061122, end: 20061122
  2. OFLOXACIN [Concomitant]

REACTIONS (1)
  - HENOCH-SCHONLEIN PURPURA [None]
